FAERS Safety Report 8210035-9 (Version None)
Quarter: 2012Q1

REPORT INFORMATION
  Report Type: 
  Country: None (occurrence: None)
  Receive Date: 20120314
  Receipt Date: 20110825
  Transmission Date: 20120608
  Serious: No
  Sender: FDA-Public Use
  Company Number: US-ASTRAZENECA-2005UW16021

PATIENT
  Sex: Male

DRUGS (2)
  1. ALTACE [Suspect]
     Route: 065
     Dates: start: 20020501
  2. TOPROL-XL [Suspect]
     Route: 048
     Dates: start: 20020501

REACTIONS (3)
  - BLOOD TRIGLYCERIDES INCREASED [None]
  - WRONG TECHNIQUE IN DRUG USAGE PROCESS [None]
  - LIPIDS INCREASED [None]
